FAERS Safety Report 26178614 (Version 1)
Quarter: 2025Q4

REPORT INFORMATION
  Report Type: Spontaneous
  Country: US (occurrence: US)
  Receive Date: 20251219
  Receipt Date: 20251219
  Transmission Date: 20260118
  Serious: No
  Sender: SANOFI AVENTIS
  Company Number: US-SA-2025SA377400

PATIENT
  Sex: Female
  Weight: 82.27 kg

DRUGS (2)
  1. DUPIXENT [Suspect]
     Active Substance: DUPILUMAB
     Dosage: UNK UNK, QOW
     Route: 058
  2. LORATADINE [Concomitant]
     Active Substance: LORATADINE

REACTIONS (3)
  - Hordeolum [Unknown]
  - Eye ulcer [Unknown]
  - Injection site pain [Unknown]
